FAERS Safety Report 9737319 (Version 1)
Quarter: 2013Q4

REPORT INFORMATION
  Report Type: Spontaneous
  Country: US (occurrence: US)
  Receive Date: 20131206
  Receipt Date: 20131206
  Transmission Date: 20140711
  Serious: No
  Sender: FDA-Public Use
  Company Number: US-BIOGENIDEC-2013BI097507

PATIENT
  Age: 61 Year
  Sex: Female

DRUGS (4)
  1. TECFIDERA [Suspect]
     Indication: MULTIPLE SCLEROSIS
     Route: 048
     Dates: start: 20130920, end: 20130926
  2. TECFIDERA [Suspect]
     Indication: MULTIPLE SCLEROSIS
     Route: 048
     Dates: start: 20130927
  3. AMPYRA [Concomitant]
     Indication: GAIT SPASTIC
     Route: 048
     Dates: start: 2010
  4. CELEXA [Concomitant]
     Indication: ANXIETY
     Route: 048

REACTIONS (3)
  - Irritability [Not Recovered/Not Resolved]
  - Impatience [Not Recovered/Not Resolved]
  - Emotional disorder [Not Recovered/Not Resolved]
